FAERS Safety Report 17739388 (Version 1)
Quarter: 2020Q2

REPORT INFORMATION
  Report Type: Spontaneous
  Country: IT (occurrence: IT)
  Receive Date: 20200504
  Receipt Date: 20200504
  Transmission Date: 20200714
  Serious: Yes (Death)
  Sender: FDA-Public Use
  Company Number: IT-AUROBINDO-AUR-APL-2020-021537

PATIENT
  Age: 50 Year
  Sex: Male

DRUGS (12)
  1. INTERFERON [Suspect]
     Active Substance: INTERFERON
     Indication: FATIGUE
  2. MOXIFLOXACIN. [Suspect]
     Active Substance: MOXIFLOXACIN
     Indication: CORONAVIRUS INFECTION
  3. INTERFERON [Suspect]
     Active Substance: INTERFERON
     Indication: COUGH
     Dosage: UNK
     Route: 065
  4. CORTISONE [Suspect]
     Active Substance: CORTISONE
     Indication: DYSPNOEA
     Dosage: 600 MILLIGRAM
     Route: 065
  5. CORTISONE [Suspect]
     Active Substance: CORTISONE
     Indication: FATIGUE
     Dosage: UNK
     Route: 065
  6. CORTISONE [Suspect]
     Active Substance: CORTISONE
     Indication: COUGH
  7. MOXIFLOXACIN. [Suspect]
     Active Substance: MOXIFLOXACIN
     Indication: DYSPNOEA
  8. MOXIFLOXACIN. [Suspect]
     Active Substance: MOXIFLOXACIN
     Indication: FATIGUE
     Dosage: UNK
     Route: 065
  9. INTERFERON [Suspect]
     Active Substance: INTERFERON
     Indication: CORONAVIRUS INFECTION
  10. INTERFERON [Suspect]
     Active Substance: INTERFERON
     Indication: DYSPNOEA
  11. MOXIFLOXACIN. [Suspect]
     Active Substance: MOXIFLOXACIN
     Indication: COUGH
  12. CORTISONE [Suspect]
     Active Substance: CORTISONE
     Indication: CORONAVIRUS INFECTION

REACTIONS (1)
  - Immune system disorder [Fatal]
